FAERS Safety Report 19306561 (Version 1)
Quarter: 2021Q2

REPORT INFORMATION
  Report Type: Spontaneous
  Country: US (occurrence: US)
  Receive Date: 20210526
  Receipt Date: 20210526
  Transmission Date: 20210717
  Serious: No
  Sender: FDA-Public Use
  Company Number: NVSC2021US115436

PATIENT
  Sex: Male

DRUGS (1)
  1. COSENTYX [Suspect]
     Active Substance: SECUKINUMAB
     Indication: PRODUCT USED FOR UNKNOWN INDICATION
     Dosage: UNK, (150 MG IN 1 ML) (PACKAGE OF 2 ML)
     Route: 065
     Dates: start: 20210503

REACTIONS (2)
  - Abnormal dreams [Unknown]
  - Drug ineffective [Unknown]
